FAERS Safety Report 5271114-1 (Version None)
Quarter: 2007Q1

REPORT INFORMATION
  Report Type: 
  Country: None (occurrence: None)
  Receive Date: 20061214
  Receipt Date: 20060714
  Transmission Date: 20070707
  Serious: Yes (Hospitalization, Other)
  Sender: FDA-Public Use
  Company Number: 2006065836

PATIENT
  Age: 68 Year
  Sex: Female
  Weight: 77.1115 kg

DRUGS (3)
  1. BEXTRA [Suspect]
     Indication: ARTHRITIS
     Dosage: 10 MG (10 MG,1 IN 1 D)
     Dates: start: 20030327
  2. BEXTRA [Suspect]
     Indication: INFLAMMATION
     Dosage: 10 MG (10 MG,1 IN 1 D)
     Dates: start: 20030327
  3. BEXTRA [Suspect]
     Indication: PAIN MANAGEMENT
     Dosage: 10 MG (10 MG,1 IN 1 D)
     Dates: start: 20030327

REACTIONS (3)
  - ANXIETY [None]
  - MYOCARDIAL INFARCTION [None]
  - PULMONARY EMBOLISM [None]
